FAERS Safety Report 8608951-9 (Version None)
Quarter: 2012Q3

REPORT INFORMATION
  Report Type: 
  Country: None (occurrence: None)
  Receive Date: 20120821
  Receipt Date: 20120815
  Transmission Date: 20120928
  Serious: Yes (Other)
  Sender: FDA-Public Use
  Company Number: US-PFIZER INC-2012184724

PATIENT
  Age: 43 Year
  Sex: Female

DRUGS (2)
  1. ALLEGRA-D 12 HOUR [Suspect]
     Indication: RASH
     Dosage: UNK
  2. NEURONTIN [Suspect]
     Dosage: UNK

REACTIONS (1)
  - ASTHMA [None]
